FAERS Safety Report 24039108 (Version 1)
Quarter: 2024Q3

REPORT INFORMATION
  Report Type: Spontaneous
  Country: US (occurrence: US)
  Receive Date: 20240702
  Receipt Date: 20240702
  Transmission Date: 20241016
  Serious: Yes (Life-Threatening, Hospitalization, Other)
  Sender: HIKMA
  Company Number: US-MLMSERVICE-20240613-PI097812-00201-1

PATIENT
  Age: 81 Year
  Sex: Female
  Weight: 65 kg

DRUGS (2)
  1. LIDOCAINE [Suspect]
     Active Substance: LIDOCAINE
     Indication: Urinary tract infection
     Dosage: 50 ML OF LIDOCAINE 1% INSTEAD OF NORMAL SALINE, YIELDING ?7.7 MG/KG LIDOCAINE DOSE, ABOVE THE TOXIC
  2. CEFTRIAXONE [Concomitant]
     Active Substance: CEFTRIAXONE\CEFTRIAXONE SODIUM
     Indication: Urinary tract infection
     Route: 042

REACTIONS (11)
  - Pulse absent [Recovered/Resolved]
  - Blood gases abnormal [Recovered/Resolved]
  - Encephalopathy [Recovered/Resolved]
  - Blood lactic acid increased [Recovered/Resolved]
  - Supraventricular extrasystoles [Recovered/Resolved]
  - Lung opacity [Recovered/Resolved]
  - Apnoea [Recovered/Resolved]
  - QRS axis abnormal [Recovered/Resolved]
  - Wrong product administered [Recovered/Resolved]
  - Local anaesthetic systemic toxicity [Recovered/Resolved]
  - Generalised tonic-clonic seizure [Recovered/Resolved]
